FAERS Safety Report 6368797-1 (Version None)
Quarter: 2009Q3

REPORT INFORMATION
  Report Type: 
  Country: None (occurrence: None)
  Receive Date: 20090916
  Receipt Date: 20090909
  Transmission Date: 20100115
  Serious: Yes (Death, Hospitalization)
  Sender: FDA-Public Use
  Company Number: 342670

PATIENT
  Age: 18 Year
  Sex: Male
  Weight: 100 kg

DRUGS (7)
  1. METHOTREXATE [Suspect]
     Indication: ACUTE LYMPHOCYTIC LEUKAEMIA
     Dosage: 250 MG/M2, INTRAVENOUS, 580 MG, INTRAVENOUS
     Route: 042
     Dates: start: 20090709
  2. METHOTREXATE [Suspect]
     Indication: ACUTE LYMPHOCYTIC LEUKAEMIA
     Dosage: 250 MG/M2, INTRAVENOUS, 580 MG, INTRAVENOUS
     Route: 042
     Dates: start: 20090720
  3. VINCRISTINE [Concomitant]
  4. STERILE PENTAMIDINE ISETHIONATE [Concomitant]
  5. ELAVIL [Concomitant]
  6. ZOFRAN [Concomitant]
  7. COMPAZINE [Concomitant]

REACTIONS (17)
  - ACIDOSIS [None]
  - ASPARTATE AMINOTRANSFERASE INCREASED [None]
  - BLISTER [None]
  - BLOOD BILIRUBIN INCREASED [None]
  - CARDIAC ARREST [None]
  - DEHYDRATION [None]
  - DIALYSIS [None]
  - DRUG TOXICITY [None]
  - HYPOTENSION [None]
  - MENTAL STATUS CHANGES [None]
  - MUCOSAL INFLAMMATION [None]
  - MULTI-ORGAN FAILURE [None]
  - OROPHARYNGEAL PAIN [None]
  - PYREXIA [None]
  - RENAL FAILURE [None]
  - SKIN EXFOLIATION [None]
  - VENTRICULAR TACHYCARDIA [None]
